FAERS Safety Report 7323407-1 (Version None)
Quarter: 2011Q1

REPORT INFORMATION
  Report Type: 
  Country: None (occurrence: None)
  Receive Date: 20110301
  Receipt Date: 20110224
  Transmission Date: 20110831
  Serious: Yes (Hospitalization)
  Sender: FDA-Public Use
  Company Number: DE-PFIZER INC-2006045210

PATIENT
  Age: 58 Year
  Sex: Male
  Weight: 90 kg

DRUGS (10)
  1. FERRO SANOL [Concomitant]
     Route: 048
     Dates: start: 20051101
  2. CIPROFLOXACIN [Concomitant]
     Route: 048
     Dates: start: 20060327
  3. ALLOPURINOL [Concomitant]
     Route: 048
     Dates: start: 20040101
  4. METOPROLOL [Concomitant]
     Route: 048
     Dates: start: 20040101
  5. NORVASC [Concomitant]
     Route: 048
     Dates: start: 20040101
  6. SUNITINIB MALATE [Suspect]
     Indication: METASTATIC RENAL CELL CARCINOMA
     Dosage: 50 MG, 1X/DAY
     Route: 048
     Dates: start: 20060308, end: 20060327
  7. CYNT [Concomitant]
     Route: 048
     Dates: start: 20040101
  8. VITAMIN B COMPLEX CAP [Concomitant]
     Route: 048
     Dates: start: 20051101
  9. LISINOPRIL AND HYDROCHLOROTHIAZIDE [Concomitant]
     Route: 048
     Dates: start: 20040101
  10. SELENIUM [Concomitant]
     Route: 048
     Dates: start: 20051101

REACTIONS (4)
  - CIRCULATORY COLLAPSE [None]
  - PYREXIA [None]
  - GENERAL PHYSICAL HEALTH DETERIORATION [None]
  - JAUNDICE [None]
